FAERS Safety Report 20757066 (Version 1)
Quarter: 2022Q2

REPORT INFORMATION
  Report Type: Spontaneous
  Country: US (occurrence: US)
  Receive Date: 20220427
  Receipt Date: 20220427
  Transmission Date: 20220720
  Serious: Yes (Hospitalization)
  Sender: FDA-Public Use
  Company Number: US-MYLANLABS-2022M1030889

PATIENT
  Age: 54 Year
  Sex: Male

DRUGS (6)
  1. EPINEPHRINE [Suspect]
     Active Substance: EPINEPHRINE
     Indication: Headache
     Dosage: 8 MILLILITER
     Route: 065
  2. KETOROLAC [Suspect]
     Active Substance: KETOROLAC TROMETHAMINE
     Indication: Headache
     Dosage: 30 MILLIGRAM, Q6H, AS NEEDED, WITH 3 TOTAL DOSES
     Route: 042
  3. ACETAMINOPHEN\OXYCODONE HYDROCHLORIDE [Suspect]
     Active Substance: ACETAMINOPHEN\OXYCODONE HYDROCHLORIDE
     Indication: Headache
     Dosage: UNK, Q4H, 5MG/325MG GIVEN ORALLY EVERY 4H AS NEEDED, 1 TO 2 DOSES
     Route: 048
  4. BUPIVACAINE [Suspect]
     Active Substance: BUPIVACAINE
     Indication: Headache
     Dosage: 3 MILLILITER
     Route: 065
  5. HYDROMORPHONE [Suspect]
     Active Substance: HYDROMORPHONE
     Indication: Headache
     Dosage: 0.2 MILLIGRAM, EVERY 12 MINUTES, AS NEEDED WITH A MAXIMUM OF 1 MG/H
     Route: 065
  6. HYDROMORPHONE [Suspect]
     Active Substance: HYDROMORPHONE
     Dosage: 1 MILLIGRAM, QH
     Route: 065

REACTIONS (2)
  - Drug ineffective [Unknown]
  - Off label use [Unknown]
